FAERS Safety Report 24125036 (Version 2)
Quarter: 2024Q3

REPORT INFORMATION
  Report Type: Spontaneous
  Country: AR (occurrence: AR)
  Receive Date: 20240723
  Receipt Date: 20240729
  Transmission Date: 20241017
  Serious: Yes (Hospitalization, Other)
  Sender: SANDOZ
  Company Number: AR-SANDOZ-SDZ2024AR067140

PATIENT
  Age: 8 Year
  Sex: Male
  Weight: 38 kg

DRUGS (2)
  1. OMNITROPE [Suspect]
     Active Substance: SOMATROPIN
     Indication: Growth retardation
     Dosage: DOSE: 0.7 (UNIT NOT REPORTED); FREQUENCY: 7 (UNIT NOT REPORTED)
     Route: 058
     Dates: start: 20230314
  2. OMNITROPE [Suspect]
     Active Substance: SOMATROPIN
     Indication: Growth hormone deficiency

REACTIONS (7)
  - Pituitary tumour [Unknown]
  - Device dislocation [Unknown]
  - Weight increased [Unknown]
  - Somnolence [Not Recovered/Not Resolved]
  - Bronchospasm [Unknown]
  - Cerebrospinal fluid circulation disorder [Unknown]
  - Headache [Not Recovered/Not Resolved]

NARRATIVE: CASE EVENT DATE: 20230701
